FAERS Safety Report 6767711-4 (Version None)
Quarter: 2010Q2

REPORT INFORMATION
  Report Type: 
  Country: None (occurrence: None)
  Receive Date: 20100614
  Receipt Date: 20100604
  Transmission Date: 20101027
  Serious: Yes (Hospitalization)
  Sender: FDA-Public Use
  Company Number: JP-ROCHE-699281

PATIENT
  Sex: Female

DRUGS (10)
  1. CAPECITABINE [Suspect]
     Indication: COLON CANCER
     Route: 048
     Dates: start: 20090805, end: 20090818
  2. CAPECITABINE [Suspect]
     Route: 048
     Dates: start: 20090826, end: 20090908
  3. CAPECITABINE [Suspect]
     Route: 048
     Dates: start: 20091001, end: 20091014
  4. CAPECITABINE [Suspect]
     Route: 048
     Dates: start: 20091023, end: 20091105
  5. CAPECITABINE [Suspect]
     Route: 048
     Dates: start: 20091127, end: 20091210
  6. CAPECITABINE [Suspect]
     Route: 048
     Dates: start: 20091225, end: 20100107
  7. CAPECITABINE [Suspect]
     Route: 048
     Dates: start: 20100115, end: 20100128
  8. CAPECITABINE [Suspect]
     Route: 048
     Dates: start: 20100205, end: 20100218
  9. PYDOXAL [Concomitant]
     Route: 048
     Dates: start: 20090805
  10. UREPEARL [Concomitant]
     Dosage: DOSAGE IS UNCERTAIN.
     Route: 003
     Dates: start: 20090805

REACTIONS (5)
  - DIARRHOEA [None]
  - FEBRILE NEUTROPENIA [None]
  - NEUTROPHIL COUNT DECREASED [None]
  - PALMAR-PLANTAR ERYTHRODYSAESTHESIA SYNDROME [None]
  - WHITE BLOOD CELL COUNT DECREASED [None]
